FAERS Safety Report 9298957 (Version 1)
Quarter: 2013Q2

REPORT INFORMATION
  Report Type: Spontaneous
  Country: US (occurrence: US)
  Receive Date: 20130520
  Receipt Date: 20130520
  Transmission Date: 20140414
  Serious: No
  Sender: FDA-Public Use
  Company Number: US-SANOFI-AVENTIS-2013SA001520

PATIENT
  Sex: Female

DRUGS (4)
  1. APIDRA [Suspect]
     Dates: start: 2009
  2. GLYBURIDE [Concomitant]
     Dates: start: 2006
  3. METFORMIN [Concomitant]
     Dates: start: 2006
  4. INSULIN DETEMIR [Concomitant]
     Dosage: DOSE:35 UNIT(S)
     Dates: start: 2006

REACTIONS (2)
  - Blood glucose increased [Unknown]
  - Blood creatinine increased [Unknown]
